FAERS Safety Report 6106959-9 (Version None)
Quarter: 2009Q1

REPORT INFORMATION
  Report Type: 
  Country: None (occurrence: None)
  Receive Date: 20090309
  Receipt Date: 20090304
  Transmission Date: 20090719
  Serious: Yes (Death, Hospitalization)
  Sender: FDA-Public Use
  Company Number: US-JNJFOC-20090301464

PATIENT
  Sex: Male

DRUGS (3)
  1. HALDOL [Suspect]
     Route: 065
  2. HALDOL [Suspect]
     Indication: DRUG USE FOR UNKNOWN INDICATION
     Route: 065
  3. MORPHINE [Concomitant]
     Route: 065

REACTIONS (7)
  - ADVERSE EVENT [None]
  - AGITATION [None]
  - APATHY [None]
  - ASTHENIA [None]
  - CONVERSION DISORDER [None]
  - DEATH [None]
  - MUSCULOSKELETAL STIFFNESS [None]
